FAERS Safety Report 8465705-4 (Version None)
Quarter: 2012Q2

REPORT INFORMATION
  Report Type: 
  Country: None (occurrence: None)
  Receive Date: 20120626
  Receipt Date: 20120618
  Transmission Date: 20120825
  Serious: Yes (Death)
  Sender: FDA-Public Use
  Company Number: US-PFIZER INC-2012148574

PATIENT
  Age: 34 Year
  Sex: Male

DRUGS (8)
  1. LAMOTRIGINE [Concomitant]
  2. KEPPRA [Concomitant]
     Dosage: UNK
  3. AMITRIPTYLINE [Concomitant]
  4. NORTRIPTYLINE [Concomitant]
  5. PREGABALIN [Concomitant]
  6. TRAZODONE [Concomitant]
  7. MORPHINE SULFATE [Suspect]
     Dosage: UNK
  8. DIPHENHYDRAMINE [Concomitant]

REACTIONS (1)
  - ACCIDENTAL POISONING [None]
